FAERS Safety Report 6760682-6 (Version None)
Quarter: 2010Q2

REPORT INFORMATION
  Report Type: 
  Country: None (occurrence: None)
  Receive Date: 20100608
  Receipt Date: 20100528
  Transmission Date: 20101027
  Serious: Yes (Hospitalization, Disabling, Other)
  Sender: FDA-Public Use
  Company Number: US-PFIZER INC-2010062442

PATIENT
  Sex: Male
  Weight: 91.6 kg

DRUGS (9)
  1. BLINDED *NO SUBJECT DRUG [Suspect]
     Indication: PROSTATE CANCER
     Dosage: 25 MG, 1X/DAY
     Route: 048
     Dates: start: 20100219, end: 20100515
  2. BLINDED *PLACEBO [Suspect]
     Indication: PROSTATE CANCER
     Dosage: 25 MG, 1X/DAY
     Route: 048
     Dates: start: 20100219, end: 20100515
  3. SUNITINIB MALATE [Suspect]
     Indication: PROSTATE CANCER
     Dosage: 25 MG, 1X/DAY
     Route: 048
     Dates: start: 20100219, end: 20100515
  4. *PREDNISONE [Suspect]
     Indication: PROSTATE CANCER
     Dosage: 5 MG, 2X/DAY
     Route: 048
     Dates: start: 20100219
  5. MECLIZINE HYDROCHLORIDE [Concomitant]
     Indication: DIZZINESS
     Dosage: 25 MG, Q6 HRS PRN
     Route: 048
     Dates: start: 20100512
  6. VITAMIN D [Concomitant]
     Indication: MEDICAL DIET
     Dosage: 1000 IU, 1X/DAY
     Route: 048
     Dates: start: 20090701
  7. MEGACE [Concomitant]
     Indication: HOT FLUSH
     Dosage: 40 MG, 1X/DAY
     Route: 048
     Dates: start: 20100211
  8. GLIPIZIDE [Concomitant]
     Indication: DIABETES MELLITUS
     Dosage: 5 MG, Q AM
     Route: 048
     Dates: start: 20030101
  9. CELEBREX [Concomitant]
     Indication: OSTEOARTHRITIS
     Dosage: 200 MG, 1X/DAY
     Route: 048
     Dates: start: 20050101

REACTIONS (1)
  - DIVERTICULAR PERFORATION [None]
